FAERS Safety Report 9365220 (Version 1)
Quarter: 2013Q2

REPORT INFORMATION
  Report Type: Spontaneous
  Country: MY (occurrence: MY)
  Receive Date: 20130624
  Receipt Date: 20130624
  Transmission Date: 20140414
  Serious: Yes (Hospitalization, Other)
  Sender: FDA-Public Use
  Company Number: MY-009507513-1306MYS009418

PATIENT
  Age: 67 Year
  Sex: Female

DRUGS (1)
  1. FOSAMAX PLUS [Suspect]
     Indication: OSTEOPOROSIS
     Dosage: 70 MG, QW
     Route: 048
     Dates: start: 2010, end: 20130511

REACTIONS (1)
  - Femur fracture [Recovered/Resolved]
